FAERS Safety Report 9400745 (Version 3)
Quarter: 2014Q1

REPORT INFORMATION
  Report Type: Spontaneous
  Country: US (occurrence: US)
  Receive Date: 20130715
  Receipt Date: 20140127
  Transmission Date: 20141002
  Serious: Yes (Hospitalization)
  Sender: FDA-Public Use
  Company Number: US-GLAXOSMITHKLINE-A1032840A

PATIENT
  Age: 74 Year
  Sex: 0

DRUGS (2)
  1. AVANDIA [Suspect]
     Indication: DIABETES MELLITUS
     Dosage: 8MG PER DAY
     Route: 048
     Dates: start: 20061223, end: 20071205
  2. AVANDAMET [Suspect]
     Indication: DIABETES MELLITUS
     Route: 048
     Dates: start: 200409, end: 20071205

REACTIONS (4)
  - Myocardial infarction [Unknown]
  - Acute coronary syndrome [Unknown]
  - Cardiac failure congestive [Unknown]
  - Coronary artery disease [Unknown]
